FAERS Safety Report 5790565-X (Version None)
Quarter: 2008Q2

REPORT INFORMATION
  Report Type: 
  Country: None (occurrence: None)
  Receive Date: 20080626
  Receipt Date: 20080501
  Transmission Date: 20081010
  Serious: No
  Sender: FDA-Public Use
  Company Number: A0725758A

PATIENT
  Age: 58 Year
  Sex: Female

DRUGS (3)
  1. ALLI [Suspect]
     Route: 048
  2. THYROID TAB [Concomitant]
  3. UNKNOWN MEDICATION [Concomitant]

REACTIONS (7)
  - COUGH [None]
  - EAR PAIN [None]
  - HYPOAESTHESIA [None]
  - INFLUENZA [None]
  - INTENTIONAL DRUG MISUSE [None]
  - PHARYNGOLARYNGEAL PAIN [None]
  - WEIGHT INCREASED [None]
